FAERS Safety Report 11561412 (Version 1)
Quarter: 2015Q3

REPORT INFORMATION
  Report Type: Spontaneous
  Country: US (occurrence: US)
  Receive Date: 20150916
  Receipt Date: 20150916
  Transmission Date: 20151125
  Serious: No
  Sender: FDA-Public Use
  Company Number: US-ELI_LILLY_AND_COMPANY-US200810006742

PATIENT
  Age: 59 Year
  Sex: Female

DRUGS (2)
  1. VITAMIN D [Concomitant]
     Active Substance: CHOLECALCIFEROL
     Dosage: 50000 IU, UNK
     Route: 048
     Dates: start: 20080610, end: 20080610
  2. FORTEO [Suspect]
     Active Substance: TERIPARATIDE
     Dates: start: 20080610

REACTIONS (1)
  - Blood 25-hydroxycholecalciferol decreased [Not Recovered/Not Resolved]

NARRATIVE: CASE EVENT DATE: 20081023
